FAERS Safety Report 24667621 (Version 1)
Quarter: 2024Q4

REPORT INFORMATION
  Report Type: Spontaneous
  Country: FR (occurrence: FR)
  Receive Date: 20241126
  Receipt Date: 20241126
  Transmission Date: 20250114
  Serious: Yes (Other)
  Sender: ABBVIE
  Company Number: None

PATIENT
  Age: 47 Year
  Sex: Female
  Weight: 63 kg

DRUGS (2)
  1. ADALIMUMAB [Suspect]
     Active Substance: ADALIMUMAB
     Indication: Ankylosing spondylitis
     Dosage: ADALIMUMAB ((MAMMIFERE/HAMSTER/CHO))
     Route: 058
     Dates: start: 20211201, end: 20240101
  2. ADALIMUMAB [Suspect]
     Active Substance: ADALIMUMAB
     Dosage: ADALIMUMAB ((MAMMIFERE/HAMSTER/CHO))
     Route: 058
     Dates: start: 20240301, end: 20240601

REACTIONS (1)
  - Depression [Recovered/Resolved]

NARRATIVE: CASE EVENT DATE: 20230401
